FAERS Safety Report 4688165-8 (Version None)
Quarter: 2005Q2

REPORT INFORMATION
  Report Type: 
  Country: None (occurrence: None)
  Receive Date: 20050609
  Receipt Date: 20000525
  Transmission Date: 20051028
  Serious: Yes (Hospitalization)
  Sender: FDA-Public Use
  Company Number: 2005BI002078

PATIENT
  Age: 44 Year
  Sex: Female

DRUGS (13)
  1. AVONEX [Suspect]
     Indication: MULTIPLE SCLEROSIS
     Dosage: 30 UG;QW; IM
     Route: 030
     Dates: start: 20010101, end: 20040801
  2. REBIF [Concomitant]
  3. ZOLOFT [Concomitant]
  4. TEMAZEPAM [Concomitant]
  5. ASCOL [Concomitant]
  6. KLONOPIN [Concomitant]
  7. NEURONTIN [Concomitant]
  8. PREVACID [Concomitant]
  9. PROVIGIL [Concomitant]
  10. MIRAPEX [Concomitant]
  11. OXYTROL [Concomitant]
  12. ZANAFLEX [Concomitant]
  13. RELPAX [Concomitant]

REACTIONS (9)
  - ANKLE FRACTURE [None]
  - ASTHENIA [None]
  - BLADDER DISORDER [None]
  - CROHN'S DISEASE [None]
  - DRUG INEFFECTIVE [None]
  - DYSSTASIA [None]
  - FALL [None]
  - INJECTION SITE PAIN [None]
  - MULTIPLE SCLEROSIS RELAPSE [None]
